FAERS Safety Report 17436768 (Version 1)
Quarter: 2020Q1

REPORT INFORMATION
  Report Type: Spontaneous
  Country: US (occurrence: US)
  Receive Date: 20200219
  Receipt Date: 20200219
  Transmission Date: 20200409
  Serious: No
  Sender: FDA-Public Use
  Company Number: US-SA-2020SA041837

PATIENT
  Age: 63 Year
  Sex: Male

DRUGS (1)
  1. DUPIXENT [Suspect]
     Active Substance: DUPILUMAB

REACTIONS (6)
  - Influenza [Unknown]
  - Eye pain [Unknown]
  - Vertigo [Unknown]
  - Malaise [Unknown]
  - Drug ineffective [Unknown]
  - Ocular discomfort [Unknown]
